FAERS Safety Report 8673317 (Version 7)
Quarter: 2013Q3

REPORT INFORMATION
  Report Type: Report from Study
  Country: CA (occurrence: CA)
  Receive Date: 20120719
  Receipt Date: 20130718
  Transmission Date: 20140515
  Serious: Yes (Other)
  Sender: FDA-Public Use
  Company Number: PHHY2012CA031867

PATIENT
  Sex: Female

DRUGS (2)
  1. GILENYA [Suspect]
     Indication: RELAPSING-REMITTING MULTIPLE SCLEROSIS
     Dosage: 0.5 MG, QD
     Route: 048
     Dates: start: 20111206
  2. DITROPAN [Concomitant]
     Dosage: 15 MG, UNK

REACTIONS (7)
  - Osteoarthritis [Unknown]
  - Arthralgia [Unknown]
  - Gait disturbance [Unknown]
  - Condition aggravated [Unknown]
  - Musculoskeletal stiffness [Unknown]
  - Balance disorder [Recovered/Resolved]
  - Asthenia [Recovered/Resolved]
